FAERS Safety Report 6839661-6 (Version None)
Quarter: 2010Q3

REPORT INFORMATION
  Report Type: 
  Country: None (occurrence: None)
  Receive Date: 20100708
  Receipt Date: 20100623
  Transmission Date: 20110219
  Serious: Yes (Hospitalization)
  Sender: FDA-Public Use
  Company Number: 010014

PATIENT
  Sex: Female
  Weight: 75 kg

DRUGS (7)
  1. CERTOLIZUMAB PEGOL (CERTOLIZUMAB PEGOL) [Suspect]
     Indication: CROHN'S DISEASE
     Dosage: SEE IMAGE
     Route: 058
     Dates: start: 20090611, end: 20090708
  2. CERTOLIZUMAB PEGOL (CERTOLIZUMAB PEGOL) [Suspect]
     Indication: CROHN'S DISEASE
     Dosage: SEE IMAGE
     Route: 058
     Dates: start: 20090724
  3. AZATHIOPRIN [Concomitant]
  4. PANTASA [Concomitant]
  5. CIPLOX /00697202/ [Concomitant]
  6. FOLIC ACID [Concomitant]
  7. URSO FALK [Concomitant]

REACTIONS (4)
  - COLONIC STENOSIS [None]
  - ENTEROCUTANEOUS FISTULA [None]
  - PLEURAL EFFUSION [None]
  - UTERINE LEIOMYOMA [None]
